FAERS Safety Report 10260628 (Version 2)
Quarter: 2014Q3

REPORT INFORMATION
  Report Type: Spontaneous
  Country: US (occurrence: US)
  Receive Date: 20140626
  Receipt Date: 20140807
  Transmission Date: 20150326
  Serious: Yes (Death, Other)
  Sender: FDA-Public Use
  Company Number: US-AMGEN-USASP2014046579

PATIENT
  Age: 96 Year
  Sex: Female
  Weight: 63.04 kg

DRUGS (10)
  1. PROLIA [Suspect]
     Active Substance: DENOSUMAB
     Indication: OSTEOPOROSIS POSTMENOPAUSAL
     Dosage: UNK
     Route: 065
  2. LUMIGAN [Concomitant]
     Active Substance: BIMATOPROST
     Dosage: 0.1 %, QHS
     Dates: end: 20130530
  3. LEVOBUNOLOL HCL [Concomitant]
     Dosage: 0.5 %, QD
  4. FOLIC ACID. [Concomitant]
     Active Substance: FOLIC ACID
     Dosage: 1 MG, QD
     Route: 048
  5. TETANUS VACCIN [Concomitant]
     Active Substance: CLOSTRIDIUM TETANI TOXOID ANTIGEN (FORMALDEHYDE INACTIVATED)
     Dosage: UNK
     Dates: start: 201104
  6. MIRALAX [Concomitant]
     Active Substance: POLYETHYLENE GLYCOL 3350
     Dosage: UNK UNK, QD
  7. FLU [Concomitant]
     Active Substance: INFLUENZA VIRUS VACCINE
  8. REFRESH                            /00007001/ [Concomitant]
     Dosage: 1.4-0.6 %, QD
  9. CENTRUM SILVER                     /02363801/ [Concomitant]
     Active Substance: VITAMINS
     Dosage: 1 DF, QD
  10. ZOSTAVAX [Concomitant]
     Active Substance: VARICELLA-ZOSTER VIRUS STRAIN OKA/MERCK LIVE ANTIGEN
     Dosage: UNK
     Dates: start: 20130720

REACTIONS (17)
  - Macular degeneration [Unknown]
  - Osteoarthritis [Unknown]
  - Essential hypertension [Unknown]
  - Pollakiuria [Unknown]
  - Metastases to lung [Fatal]
  - Respiratory failure [Fatal]
  - Pain [Unknown]
  - Diabetes mellitus [Unknown]
  - Atrial fibrillation [Unknown]
  - Restless legs syndrome [Unknown]
  - Peripheral swelling [Unknown]
  - Polyarthritis [Unknown]
  - Hypoacusis [Unknown]
  - Hip fracture [Unknown]
  - Type V hyperlipidaemia [Unknown]
  - Renal failure chronic [Unknown]
  - Skin lesion [Unknown]

NARRATIVE: CASE EVENT DATE: 20140125
